FAERS Safety Report 23072377 (Version 1)
Quarter: 2023Q4

REPORT INFORMATION
  Report Type: Spontaneous
  Country: US (occurrence: US)
  Receive Date: 20231017
  Receipt Date: 20231017
  Transmission Date: 20240110
  Serious: No
  Sender: FDA-Public Use
  Company Number: US-SA-SAC20231009001053

PATIENT
  Sex: Female

DRUGS (3)
  1. DUPIXENT [Suspect]
     Active Substance: DUPILUMAB
     Indication: Dermatitis allergic
     Dosage: 300 MG, QOW; 5 YEARS AS OF JUNE OR JULY 2023
     Route: 058
     Dates: start: 2018, end: 202308
  2. DUPIXENT [Suspect]
     Active Substance: DUPILUMAB
     Indication: Dermatitis atopic
     Dosage: 300 MG, QM
     Route: 058
     Dates: start: 202308
  3. DUPIXENT [Suspect]
     Active Substance: DUPILUMAB
     Indication: Urticaria

REACTIONS (27)
  - Dry mouth [Unknown]
  - Dry skin [Unknown]
  - Osteoarthritis [Unknown]
  - Fibromyalgia [Unknown]
  - Discomfort [Unknown]
  - Migraine [Unknown]
  - Dyspepsia [Unknown]
  - Flatulence [Unknown]
  - Dysarthria [Unknown]
  - Toothache [Unknown]
  - Herpes zoster [Unknown]
  - Vertigo [Unknown]
  - Urticaria [Unknown]
  - Insomnia [Unknown]
  - Pruritus [Unknown]
  - Vision blurred [Unknown]
  - Condition aggravated [Unknown]
  - Oropharyngeal pain [Unknown]
  - Herpes virus infection [Unknown]
  - Arthralgia [Unknown]
  - Eye pruritus [Unknown]
  - Rash [Unknown]
  - Eczema [Unknown]
  - Sleep disorder [Unknown]
  - Skin exfoliation [Unknown]
  - Product use in unapproved indication [Unknown]
  - Product prescribing error [Unknown]

NARRATIVE: CASE EVENT DATE: 20230101
